FAERS Safety Report 8419144-2 (Version None)
Quarter: 2012Q2

REPORT INFORMATION
  Report Type: 
  Country: None (occurrence: None)
  Receive Date: 20120607
  Receipt Date: 20120515
  Transmission Date: 20120825
  Serious: Yes (Other)
  Sender: FDA-Public Use
  Company Number: PHHY2012DE047426

PATIENT
  Age: 74 Year
  Sex: Female

DRUGS (3)
  1. FEMARA [Suspect]
     Indication: BREAST CANCER
  2. APPLE TREE MISTLETOE [Concomitant]
  3. ISCADOR [Concomitant]

REACTIONS (5)
  - DIZZINESS [None]
  - HYPERTENSION [None]
  - FALL [None]
  - HYPERHIDROSIS [None]
  - BONE PAIN [None]
